FAERS Safety Report 10403984 (Version 1)
Quarter: 2014Q3

REPORT INFORMATION
  Report Type: Spontaneous
  Country: US (occurrence: US)
  Receive Date: 20140822
  Receipt Date: 20140822
  Transmission Date: 20150326
  Serious: No
  Sender: FDA-Public Use
  Company Number: US-NOVEN-14US009874

PATIENT
  Sex: Female

DRUGS (1)
  1. MINIVELLE [Suspect]
     Active Substance: ESTRADIOL
     Indication: PRODUCT USED FOR UNKNOWN INDICATION
     Route: 062

REACTIONS (10)
  - Fatigue [Unknown]
  - Vulvovaginal mycotic infection [Unknown]
  - Drug ineffective [Unknown]
  - Back pain [Unknown]
  - Constipation [Unknown]
  - Pelvic pain [Unknown]
  - Abdominal pain [Unknown]
  - Dry skin [Unknown]
  - Dysuria [Unknown]
  - Weight increased [Unknown]
